FAERS Safety Report 5465238-3 (Version None)
Quarter: 2007Q3

REPORT INFORMATION
  Report Type: 
  Country: None (occurrence: None)
  Receive Date: 20070924
  Receipt Date: 20070918
  Transmission Date: 20080115
  Serious: Yes (Death, Other)
  Sender: FDA-Public Use
  Company Number: PHBS2007US15489

PATIENT
  Age: 64 Year
  Sex: Female

DRUGS (3)
  1. VALPROIC ACID [Concomitant]
  2. SERTRALINE [Concomitant]
  3. CLOZAPINE [Suspect]
     Indication: SCHIZOAFFECTIVE DISORDER

REACTIONS (13)
  - ABDOMINAL DISTENSION [None]
  - BRAIN NATRIURETIC PEPTIDE INCREASED [None]
  - CARDIO-RESPIRATORY ARREST [None]
  - FIBRIN D DIMER INCREASED [None]
  - HYPOTENSION [None]
  - HYPOXIA [None]
  - MENTAL STATUS CHANGES [None]
  - MYOCARDITIS [None]
  - PYREXIA [None]
  - RESPIRATORY ALKALOSIS [None]
  - SINUS TACHYCARDIA [None]
  - SMALL INTESTINAL OBSTRUCTION [None]
  - TACHYCARDIA [None]
